FAERS Safety Report 7714686-7 (Version None)
Quarter: 2011Q3

REPORT INFORMATION
  Report Type: 
  Country: None (occurrence: None)
  Receive Date: 20110829
  Receipt Date: 20110825
  Transmission Date: 20111222
  Serious: Yes (Death, Hospitalization)
  Sender: FDA-Public Use
  Company Number: SE-ABBOTT-11P-150-0842261-00

PATIENT
  Age: 60 Year
  Sex: Male

DRUGS (7)
  1. LEVOFLOXACIN [Suspect]
     Indication: PRODUCT USED FOR UNKNOWN INDICATION
     Dosage: TAKEN DAILY
     Dates: start: 20110519, end: 20110530
  2. PREDNISOLONE [Concomitant]
     Indication: PRODUCT USED FOR UNKNOWN INDICATION
  3. CLARITHROMYCIN [Interacting]
     Indication: PRODUCT USED FOR UNKNOWN INDICATION
     Dosage: TAKEN DAILY
     Route: 048
     Dates: start: 20110519, end: 20110530
  4. AMIKACIN [Suspect]
     Indication: PRODUCT USED FOR UNKNOWN INDICATION
     Dosage: INJECTION DAILY
     Dates: start: 20110501, end: 20110530
  5. COLCHICINE [Interacting]
     Indication: PRODUCT USED FOR UNKNOWN INDICATION
     Route: 048
     Dates: start: 20110427, end: 20110530
  6. LYRICA [Concomitant]
     Indication: PRODUCT USED FOR UNKNOWN INDICATION
  7. WARFARIN SODIUM [Concomitant]
     Indication: PRODUCT USED FOR UNKNOWN INDICATION

REACTIONS (3)
  - DRUG INTERACTION [None]
  - DIARRHOEA [None]
  - PANCYTOPENIA [None]
